FAERS Safety Report 12839206 (Version 1)
Quarter: 2016Q4

REPORT INFORMATION
  Report Type: Spontaneous
  Country: US (occurrence: US)
  Receive Date: 20161011
  Receipt Date: 20161011
  Transmission Date: 20170207
  Serious: No
  Sender: FDA-Public Use
  Company Number: None

PATIENT
  Age: 51 Year
  Sex: Female
  Weight: 58.97 kg

DRUGS (1)
  1. FLUOROMETHOLONE 0.1% OPHTH. SUSP. [Suspect]
     Active Substance: FLUOROMETHOLONE
     Indication: EYE INFECTION
     Dosage: FLUOROMETHOLONE 0.1 % OPTHALMIC SUSPENSION - GTT BOTH EYES - OPTHALMIC
     Route: 047
     Dates: start: 20161006, end: 20161010

REACTIONS (4)
  - Product quality issue [None]
  - Foreign body sensation in eyes [None]
  - Eye pain [None]
  - Eye irritation [None]

NARRATIVE: CASE EVENT DATE: 20161010
